FAERS Safety Report 4449357-6 (Version None)
Quarter: 2004Q3

REPORT INFORMATION
  Report Type: 
  Country: None (occurrence: None)
  Receive Date: 20040913
  Receipt Date: 20040901
  Transmission Date: 20050211
  Serious: Yes (Other)
  Sender: FDA-Public Use
  Company Number: 200414279BCC

PATIENT
  Sex: Female
  Weight: 71.6683 kg

DRUGS (1)
  1. ASPIRIN [Suspect]
     Dosage: 975 MG, QD, ORAL
     Route: 048
     Dates: start: 19790101, end: 19800101

REACTIONS (2)
  - EYE HAEMORRHAGE [None]
  - THROMBOSIS [None]
